FAERS Safety Report 4744698-7 (Version None)
Quarter: 2005Q3

REPORT INFORMATION
  Report Type: 
  Country: None (occurrence: None)
  Receive Date: 20050812
  Receipt Date: 20050812
  Transmission Date: 20060218
  Serious: Yes (Hospitalization, Other)
  Sender: FDA-Public Use
  Company Number: None

PATIENT
  Sex: Male
  Weight: 73 kg

DRUGS (1)
  1. INTERFERON-ALPHA [Suspect]
     Indication: RENAL CELL CARCINOMA STAGE UNSPECIFIED
     Dosage: SEE IMAGE
     Route: 058
     Dates: start: 20050621, end: 20050621

REACTIONS (7)
  - ANOREXIA [None]
  - ASTHENIA [None]
  - DYSURIA [None]
  - RENAL FAILURE [None]
  - URINE ABNORMALITY [None]
  - URINE ODOUR ABNORMAL [None]
  - WEIGHT DECREASED [None]
